FAERS Safety Report 6791214-4 (Version None)
Quarter: 2010Q2

REPORT INFORMATION
  Report Type: 
  Country: None (occurrence: None)
  Receive Date: 20100624
  Receipt Date: 20100619
  Transmission Date: 20101027
  Serious: Yes (Hospitalization)
  Sender: FDA-Public Use
  Company Number: US-EISAI INC.-E2020-05464-SPO-US

PATIENT
  Sex: Male
  Weight: 65 kg

DRUGS (7)
  1. ARICEPT [Suspect]
     Indication: DEMENTIA
     Route: 048
     Dates: start: 20070418, end: 20100618
  2. ASPIRIN [Concomitant]
     Dosage: UNKNOWN
     Route: 048
     Dates: end: 20090601
  3. HCTZ [Concomitant]
  4. ISOSORBIDE [Concomitant]
  5. FLOMAX [Concomitant]
  6. FINASTERIDE [Concomitant]
  7. CEREFOLIN [Concomitant]

REACTIONS (6)
  - ASTHENIA [None]
  - GASTROINTESTINAL HAEMORRHAGE [None]
  - HAEMOGLOBIN DECREASED [None]
  - NAUSEA [None]
  - OESOPHAGEAL ULCER [None]
  - VOMITING [None]
